FAERS Safety Report 11406196 (Version 1)
Quarter: 2015Q3

REPORT INFORMATION
  Report Type: Spontaneous
  Country: US (occurrence: US)
  Receive Date: 20150821
  Receipt Date: 20150821
  Transmission Date: 20151125
  Serious: No
  Sender: FDA-Public Use
  Company Number: US-TARO-2015TAR00575

PATIENT
  Age: 66 Year
  Sex: Female
  Weight: 52.15 kg

DRUGS (5)
  1. MULTIVITAMIN [Concomitant]
     Active Substance: VITAMINS
  2. ATHLETES FOOT NOS [Suspect]
     Active Substance: MICONAZOLE NITRATE OR TERBINAFINE HYDROCHLORIDE OR TOLNAFTATE
     Indication: TINEA PEDIS
     Dosage: UNK UNK, 2X/DAY
     Route: 061
     Dates: start: 20150531
  3. VITAMIN B3 [Concomitant]
     Active Substance: NIACIN
  4. VITAMIN B12 [Concomitant]
     Active Substance: CYANOCOBALAMIN
  5. DIGESTIVE ENZYMES PROBIOTICS [Concomitant]

REACTIONS (1)
  - Drug effect incomplete [Not Recovered/Not Resolved]

NARRATIVE: CASE EVENT DATE: 201506
